FAERS Safety Report 14607092 (Version 2)
Quarter: 2022Q1

REPORT INFORMATION
  Report Type: Spontaneous
  Country: IT (occurrence: IT)
  Receive Date: 20180307
  Receipt Date: 20220318
  Transmission Date: 20220423
  Serious: Yes (Other)
  Sender: FDA-Public Use
  Company Number: None

PATIENT
  Age: 32 Year
  Sex: Male

DRUGS (3)
  1. HALOPERIDOL DECANOATE [Suspect]
     Active Substance: HALOPERIDOL DECANOATE
     Indication: Bipolar disorder
     Route: 030
     Dates: start: 20180214, end: 20180214
  2. HALDOL [Suspect]
     Active Substance: HALOPERIDOL
     Indication: Bipolar disorder
     Route: 048
     Dates: start: 20180214, end: 20180214
  3. CLOTHIAPINE [Concomitant]
     Active Substance: CLOTHIAPINE
     Route: 048

REACTIONS (3)
  - Bruxism [Recovered/Resolved]
  - Muscle tightness [Recovered/Resolved]
  - Muscle contractions involuntary [Recovered/Resolved]

NARRATIVE: CASE EVENT DATE: 20180215
